FAERS Safety Report 4518476-8 (Version None)
Quarter: 2004Q4

REPORT INFORMATION
  Report Type: 
  Country: None (occurrence: None)
  Receive Date: 20041203
  Receipt Date: 20041130
  Transmission Date: 20050328
  Serious: Yes (Disabling)
  Sender: FDA-Public Use
  Company Number: GB-MERCK-0412GBR00002

PATIENT
  Age: 44 Year
  Sex: Male
  Weight: 80 kg

DRUGS (4)
  1. ZETIA [Suspect]
     Indication: LIPIDS INCREASED
     Route: 048
     Dates: start: 20040717, end: 20041122
  2. ATORVASTATIN CALCIUM [Concomitant]
     Indication: HYPERLIPIDAEMIA
     Route: 048
     Dates: start: 20010129
  3. INSULIN ASPART [Concomitant]
     Indication: DIABETES MELLITUS
     Route: 058
     Dates: start: 20040913
  4. INSULIN [Concomitant]
     Indication: DIABETES MELLITUS
     Route: 058
     Dates: start: 20040913

REACTIONS (2)
  - LETHARGY [None]
  - MYALGIA [None]
